FAERS Safety Report 9167035 (Version 1)
Quarter: 2013Q1

REPORT INFORMATION
  Report Type: Spontaneous
  Country: US (occurrence: US)
  Receive Date: 20130318
  Receipt Date: 20130318
  Transmission Date: 20140127
  Serious: Yes (Other)
  Sender: FDA-Public Use
  Company Number: PHHY2013US024466

PATIENT
  Age: 24 Year
  Sex: Male

DRUGS (1)
  1. OMEPRAZOLE [Suspect]
     Indication: GASTROOESOPHAGEAL REFLUX DISEASE

REACTIONS (7)
  - Eosinophilic fasciitis [Recovered/Resolved]
  - Hypersensitivity [Recovered/Resolved]
  - Skin plaque [Recovered/Resolved]
  - Perivascular dermatitis [Recovered/Resolved]
  - Erythema [Recovered/Resolved]
  - Skin lesion [Recovered/Resolved]
  - Eosinophilia [Recovered/Resolved]
